FAERS Safety Report 7380152-4 (Version None)
Quarter: 2011Q1

REPORT INFORMATION
  Report Type: 
  Country: None (occurrence: None)
  Receive Date: 20110329
  Receipt Date: 20100831
  Transmission Date: 20110831
  Serious: No
  Sender: FDA-Public Use
  Company Number: US-MYLANLABS-2010S1016258

PATIENT
  Age: 62 Year
  Sex: Female

DRUGS (2)
  1. ESTRADIOL [Suspect]
     Indication: HORMONE REPLACEMENT THERAPY
     Dosage: QW
     Route: 062
     Dates: start: 20100601, end: 20100830
  2. LIPITOR [Concomitant]

REACTIONS (3)
  - BURNING SENSATION [None]
  - DRUG EFFECT INCREASED [None]
  - ABDOMINAL PAIN UPPER [None]
